FAERS Safety Report 6265227-5 (Version None)
Quarter: 2009Q3

REPORT INFORMATION
  Report Type: 
  Country: None (occurrence: None)
  Receive Date: 20090709
  Receipt Date: 20090709
  Transmission Date: 20100115
  Serious: Yes (Other)
  Sender: FDA-Public Use
  Company Number: None

PATIENT
  Sex: Male
  Weight: 96.1626 kg

DRUGS (2)
  1. MAGNESIUM [Suspect]
     Indication: BLOOD TEST
     Dosage: DR 64 MG 2 A DAY
     Dates: start: 20090430
  2. MAGNESIUM [Suspect]
     Indication: CARDIAC DISORDER
     Dosage: DR 64 MG 2 A DAY
     Dates: start: 20090430

REACTIONS (1)
  - PRODUCT QUALITY ISSUE [None]
